FAERS Safety Report 13347100 (Version 1)
Quarter: 2017Q1

REPORT INFORMATION
  Report Type: Spontaneous
  Country: CH (occurrence: CH)
  Receive Date: 20170317
  Receipt Date: 20170317
  Transmission Date: 20170428
  Serious: Yes (Hospitalization)
  Sender: FDA-Public Use
  Company Number: CH-BAYER-2017-045613

PATIENT
  Age: 66 Year
  Sex: Male
  Weight: 75.7 kg

DRUGS (18)
  1. CONCOR [Suspect]
     Active Substance: BISOPROLOL FUMARATE
     Dosage: 2.5 MG, QD
     Dates: start: 20160212, end: 20170307
  2. MACROGOL [Suspect]
     Active Substance: POLYETHYLENE GLYCOLS
     Dosage: UNK
     Dates: start: 20160223, end: 20160401
  3. LAXOBERON [Suspect]
     Active Substance: SODIUM PICOSULFATE
     Dosage: 15 GTT, UNK
     Dates: end: 20170307
  4. DIPROSALIC [Concomitant]
     Active Substance: BETAMETHASONE DIPROPIONATE
     Dosage: UNK
     Dates: start: 20160223
  5. ASPIRIN CARDIO 100 MG [Suspect]
     Active Substance: ASPIRIN
     Dosage: 100 MG, QD
     Dates: start: 20160213, end: 20170307
  6. VITAMIN D3 [Suspect]
     Active Substance: CHOLECALCIFEROL
     Dosage: 1500 IU, QD
     Dates: start: 20160213, end: 20170307
  7. FERRUM HAUSMANN [Concomitant]
     Active Substance: FERROUS FUMARATE
     Dosage: 100 MG, QD
     Dates: start: 20160219, end: 20170307
  8. VITARUBIN [Concomitant]
     Active Substance: CYANOCOBALAMIN
     Dosage: 1000 ?G, OW
     Dates: start: 20160218, end: 20160307
  9. TEMESTA [Suspect]
     Active Substance: LORAZEPAM
     Dosage: 1 MG, UNK
     Dates: start: 20160303, end: 20160331
  10. ACIDUM FOLICUM STREULI [Concomitant]
     Active Substance: FOLIC ACID
     Dosage: 5 MG, QD
     Dates: start: 20160217, end: 20170307
  11. VENLAFAXINE HYDROCHLORIDE. [Suspect]
     Active Substance: VENLAFAXINE HYDROCHLORIDE
     Dosage: 150 MG, UNK
     Dates: start: 20160212, end: 20170307
  12. TORASEMID [Suspect]
     Active Substance: TORSEMIDE
     Dosage: 10 MG, QD
     Dates: start: 20160212, end: 20160322
  13. ULTIBRO [Suspect]
     Active Substance: GLYCOPYRRONIUM\INDACATEROL
     Dosage: UNK
     Dates: start: 20160213
  14. VITAMIN B1 [Concomitant]
     Active Substance: THIAMINE HYDROCHLORIDE
     Dosage: 300 MG, QD
     Dates: start: 20160213, end: 20170307
  15. HALDOL [Suspect]
     Active Substance: HALOPERIDOL
     Dosage: .6 MG, UNK
     Dates: start: 20160227, end: 20160410
  16. ZYPREXA [Suspect]
     Active Substance: OLANZAPINE
     Dosage: 2.5 MG, UNK
     Dates: start: 20160212, end: 20170307
  17. NEXIUM [Suspect]
     Active Substance: ESOMEPRAZOLE MAGNESIUM
     Dosage: 40 MG, UNK
     Dates: start: 20160216, end: 20170307
  18. ATORVASTATIN [Suspect]
     Active Substance: ATORVASTATIN
     Dosage: 40 MG, QD
     Dates: start: 20160213, end: 20170307

REACTIONS (2)
  - Fall [Recovered/Resolved with Sequelae]
  - Femur fracture [Recovered/Resolved with Sequelae]

NARRATIVE: CASE EVENT DATE: 20160307
